FAERS Safety Report 17933793 (Version 3)
Quarter: 2020Q4

REPORT INFORMATION
  Report Type: Report from Study
  Country: US (occurrence: US)
  Receive Date: 20200623
  Receipt Date: 20201026
  Transmission Date: 20210113
  Serious: Yes (Other)
  Sender: FDA-Public Use
  Company Number: US-TAKEDA-2020TUS005869

PATIENT
  Age: 74 Year
  Sex: Female

DRUGS (2)
  1. TYLENOL [Concomitant]
     Active Substance: ACETAMINOPHEN
     Dosage: UNK
  2. PONATINIB [Suspect]
     Active Substance: PONATINIB
     Indication: ACUTE LYMPHOCYTIC LEUKAEMIA
     Dosage: 30 MILLIGRAM, QD
     Route: 048
     Dates: end: 20200120

REACTIONS (4)
  - Product dose omission issue [Unknown]
  - Anorectal discomfort [Unknown]
  - Rectal fissure [Recovered/Resolved]
  - Proctalgia [Unknown]

NARRATIVE: CASE EVENT DATE: 20200120
